FAERS Safety Report 7937093-0 (Version None)
Quarter: 2011Q4

REPORT INFORMATION
  Report Type: 
  Country: None (occurrence: None)
  Receive Date: 20111123
  Receipt Date: 20111115
  Transmission Date: 20120403
  Serious: Yes (Hospitalization)
  Sender: FDA-Public Use
  Company Number: GB-GENZYME-CLOF-1001912

PATIENT
  Sex: Female

DRUGS (1)
  1. EVOLTRA [Suspect]
     Indication: ACUTE LEUKAEMIA
     Dosage: UNK
     Route: 065
     Dates: start: 20080207

REACTIONS (6)
  - TRIFASCICULAR BLOCK [None]
  - HERPES ZOSTER [None]
  - HYPOTENSION [None]
  - RADICULITIS BRACHIAL [None]
  - RASH [None]
  - STAPHYLOCOCCAL INFECTION [None]
